FAERS Safety Report 17697557 (Version 1)
Quarter: 2020Q2

REPORT INFORMATION
  Report Type: Spontaneous
  Country: US (occurrence: US)
  Receive Date: 20200422
  Receipt Date: 20200422
  Transmission Date: 20200714
  Serious: Yes (Hospitalization)
  Sender: FDA-Public Use
  Company Number: None

PATIENT
  Sex: Male
  Weight: 93.6 kg

DRUGS (6)
  1. VINCRISTINE SULFATE. [Concomitant]
     Active Substance: VINCRISTINE SULFATE
  2. DAUNORUBICIN [Suspect]
     Active Substance: DAUNORUBICIN
  3. PREDNISOLONE. [Concomitant]
     Active Substance: PREDNISOLONE
  4. ONCASPAR [Concomitant]
     Active Substance: PEGASPARGASE
  5. CYTARABINE. [Concomitant]
     Active Substance: CYTARABINE
  6. METHOTREXATE. [Concomitant]
     Active Substance: METHOTREXATE

REACTIONS (6)
  - Febrile neutropenia [None]
  - Pain in extremity [None]
  - Asthenia [None]
  - Staphylococcus test positive [None]
  - Diarrhoea haemorrhagic [None]
  - Blood pressure fluctuation [None]

NARRATIVE: CASE EVENT DATE: 20200404
